FAERS Safety Report 12074691 (Version 1)
Quarter: 2016Q1

REPORT INFORMATION
  Report Type: Spontaneous
  Country: US (occurrence: US)
  Receive Date: 20160212
  Receipt Date: 20160212
  Transmission Date: 20160526
  Serious: Yes (Other)
  Sender: FDA-Public Use
  Company Number: US-ASTRAZENECA-2016SE12973

PATIENT
  Age: 41 Year
  Sex: Female
  Weight: 65.8 kg

DRUGS (3)
  1. NEXIUM [Suspect]
     Active Substance: ESOMEPRAZOLE MAGNESIUM
     Indication: DUODENAL ULCER
     Route: 048
  2. NEXIUM [Suspect]
     Active Substance: ESOMEPRAZOLE MAGNESIUM
     Indication: GASTROOESOPHAGEAL REFLUX DISEASE
     Route: 048
  3. CARAFATE [Concomitant]
     Active Substance: SUCRALFATE
     Dates: start: 2014

REACTIONS (11)
  - Drug dose omission [Unknown]
  - Intervertebral disc degeneration [Unknown]
  - Pyrexia [Unknown]
  - Dyspepsia [Unknown]
  - Glucose tolerance impaired [Unknown]
  - Product use issue [Unknown]
  - Intervertebral disc injury [Unknown]
  - Gastrointestinal disorder [Unknown]
  - Arthralgia [Unknown]
  - Back pain [Unknown]
  - Gastrooesophageal reflux disease [Unknown]

NARRATIVE: CASE EVENT DATE: 2014
